FAERS Safety Report 5567152-1 (Version None)
Quarter: 2007Q4

REPORT INFORMATION
  Report Type: 
  Country: None (occurrence: None)
  Receive Date: 20071219
  Receipt Date: 20071211
  Transmission Date: 20080405
  Serious: Yes (Death, Hospitalization, Other)
  Sender: FDA-Public Use
  Company Number: BR-ABBOTT-07P-020-0369603-00

PATIENT
  Age: 67 Year
  Sex: Male
  Weight: 85 kg

DRUGS (7)
  1. HUMIRA [Suspect]
     Indication: RHEUMATOID ARTHRITIS
     Route: 058
     Dates: start: 20060701
  2. PREDNISONE [Interacting]
     Indication: RHEUMATOID ARTHRITIS
     Route: 048
  3. DICLOFENAC [Concomitant]
     Indication: STEROID THERAPY
     Route: 048
     Dates: start: 20040101
  4. GLUCOSAMINE [Concomitant]
     Indication: ANTIINFLAMMATORY THERAPY
     Route: 048
     Dates: start: 20040101
  5. TANDRILAX [Concomitant]
     Indication: ANTIINFLAMMATORY THERAPY
     Route: 048
     Dates: start: 20040101
  6. CELECOXIB [Concomitant]
     Indication: ANTIINFLAMMATORY THERAPY
     Route: 048
     Dates: start: 20040101
  7. VASOPRIL [Concomitant]
     Indication: HYPERTENSION
     Dates: start: 20040101

REACTIONS (9)
  - BONE EROSION [None]
  - DRUG INTERACTION [None]
  - HYPERGLYCAEMIA [None]
  - INFECTION [None]
  - PYREXIA [None]
  - RENAL IMPAIRMENT [None]
  - RESPIRATORY DISORDER [None]
  - SEPSIS [None]
  - WHITE BLOOD CELL COUNT DECREASED [None]
